FAERS Safety Report 23987492 (Version 2)
Quarter: 2024Q3

REPORT INFORMATION
  Report Type: Report from Study
  Country: US (occurrence: US)
  Receive Date: 20240618
  Receipt Date: 20240709
  Transmission Date: 20241017
  Serious: No
  Sender: APELLIS PHARMACEUTICALS
  Company Number: US-APELLIS PHARMACEUTICALS-APL-2024-004125

PATIENT

DRUGS (3)
  1. PEGCETACOPLAN [Suspect]
     Active Substance: PEGCETACOPLAN
     Indication: Paroxysmal nocturnal haemoglobinuria
     Dosage: 1080 MILLIGRAM, TWICE WEEKLY
     Route: 058
     Dates: start: 20230405
  2. PEGCETACOPLAN [Suspect]
     Active Substance: PEGCETACOPLAN
     Dosage: 1080 MG, SUBCUTANEOUS, TWICE WEEKLY
     Route: 058
     Dates: start: 20230423
  3. PEGCETACOPLAN [Suspect]
     Active Substance: PEGCETACOPLAN
     Dosage: TWICE WEEKLY
     Route: 058
     Dates: start: 20240405

REACTIONS (8)
  - Product dose omission issue [Recovered/Resolved]
  - Pain of skin [Recovered/Resolved]
  - Haemorrhage [Recovered/Resolved]
  - Swelling [Recovered/Resolved]
  - Contusion [Recovering/Resolving]
  - Scar [Unknown]
  - Brain fog [Unknown]
  - Lack of spontaneous speech [Unknown]

NARRATIVE: CASE EVENT DATE: 20240217
